FAERS Safety Report 9478414 (Version 2)
Quarter: 2013Q4

REPORT INFORMATION
  Report Type: Spontaneous
  Country: US (occurrence: US)
  Receive Date: 20130827
  Receipt Date: 20131111
  Transmission Date: 20140711
  Serious: No
  Sender: FDA-Public Use
  Company Number: US-JNJFOC-20130811068

PATIENT
  Sex: Female
  Weight: 61.24 kg

DRUGS (3)
  1. DURAGESIC [Suspect]
     Indication: PAIN
     Route: 062
     Dates: end: 2010
  2. DURAGESIC [Suspect]
     Indication: PAIN
     Route: 062
     Dates: start: 2010
  3. MS IR [Concomitant]
     Indication: PAIN
     Route: 048
     Dates: start: 2010

REACTIONS (3)
  - Product quality issue [Unknown]
  - Product adhesion issue [Unknown]
  - Wrong technique in drug usage process [Recovered/Resolved]
